FAERS Safety Report 23088694 (Version 1)
Quarter: 2023Q4

REPORT INFORMATION
  Report Type: Spontaneous
  Country: US (occurrence: None)
  Receive Date: 20231018
  Receipt Date: 20231018
  Transmission Date: 20240110
  Serious: Yes (Life-Threatening, Hospitalization)
  Sender: FDA-Public Use
  Company Number: None

PATIENT
  Age: 52 Year
  Sex: Female
  Weight: 116.57 kg

DRUGS (1)
  1. OZEMPIC [Suspect]
     Active Substance: SEMAGLUTIDE
     Dosage: FREQUENCY : WEEKLY;?
     Route: 030
     Dates: start: 20230101, end: 20230710

REACTIONS (6)
  - Cholelithiasis [None]
  - Renal injury [None]
  - Pancreatitis [None]
  - Dehydration [None]
  - Umbilical haemorrhage [None]
  - Near death experience [None]

NARRATIVE: CASE EVENT DATE: 20230710
